FAERS Safety Report 4389699-6 (Version None)
Quarter: 2004Q2

REPORT INFORMATION
  Report Type: 
  Country: None (occurrence: None)
  Receive Date: 20040630
  Receipt Date: 20040616
  Transmission Date: 20050107
  Serious: No
  Sender: FDA-Public Use
  Company Number: 04P-163-0264195-00

PATIENT
  Age: 45 Year
  Sex: Male

DRUGS (7)
  1. ULTANE [Suspect]
     Indication: ANAESTHESIA
     Dosage: ONCE, INHALATION
     Route: 055
     Dates: start: 20040611, end: 20040611
  2. MIDAZOLAM HYDROCHLORIDE [Concomitant]
  3. FENTANYL [Concomitant]
  4. TORDOL [Concomitant]
  5. ONDANSETRON HCL [Concomitant]
  6. NITROUS OXIDE [Concomitant]
  7. OXYGEN [Concomitant]

REACTIONS (2)
  - OXYGEN SATURATION DECREASED [None]
  - PULMONARY HAEMORRHAGE [None]
